FAERS Safety Report 16676687 (Version 1)
Quarter: 2019Q3

REPORT INFORMATION
  Report Type: Spontaneous
  Country: IN (occurrence: IN)
  Receive Date: 20190807
  Receipt Date: 20190807
  Transmission Date: 20191004
  Serious: Yes (Hospitalization)
  Sender: FDA-Public Use
  Company Number: IN-STRIDES ARCOLAB LIMITED-2019SP007209

PATIENT
  Age: 32 Year
  Sex: Female
  Weight: 36 kg

DRUGS (3)
  1. LIDOCAINE. [Suspect]
     Active Substance: LIDOCAINE
     Indication: MITRAL COMMISSUROTOMY
     Dosage: 10 ML, TWO DOSES ADMINISTERED
     Route: 065
  2. FENTANYL. [Interacting]
     Active Substance: FENTANYL
     Indication: CATHETER SITE PAIN
     Dosage: 40 MCG, SINGLE
     Route: 042
  3. ATROPINE. [Concomitant]
     Active Substance: ATROPINE
     Indication: MITRAL COMMISSUROTOMY
     Dosage: 0.6 MG, UNK
     Route: 042

REACTIONS (8)
  - Local anaesthetic systemic toxicity [Unknown]
  - Muscle tightness [Recovered/Resolved]
  - Tachycardia [Unknown]
  - Tonic posturing [Recovered/Resolved]
  - Drug interaction [Unknown]
  - Depressed level of consciousness [Recovered/Resolved]
  - Seizure [Recovered/Resolved]
  - Postictal state [Recovered/Resolved]
